FAERS Safety Report 8478715-8 (Version None)
Quarter: 2012Q2

REPORT INFORMATION
  Report Type: 
  Country: None (occurrence: None)
  Receive Date: 20120629
  Receipt Date: 20120620
  Transmission Date: 20120825
  Serious: Yes (Other)
  Sender: FDA-Public Use
  Company Number: FR-VERTEX PHARMACEUTICALS INC.-000000000000000099

PATIENT
  Sex: Female
  Weight: 60 kg

DRUGS (3)
  1. PEGINTERFERON ALFA [Concomitant]
     Indication: HEPATITIS C
     Dates: start: 20110101, end: 20110101
  2. TELAPREVIR [Suspect]
     Indication: HEPATITIS C
     Dosage: DOSAGE FORM: TABLET
     Route: 048
     Dates: start: 20110101, end: 20110101
  3. RIBAVIRINE [Concomitant]
     Indication: HEPATITIS C
     Dates: start: 20110101, end: 20110101

REACTIONS (2)
  - OFF LABEL USE [None]
  - DERMATITIS EXFOLIATIVE [None]
